FAERS Safety Report 10091314 (Version 2)
Quarter: 2014Q2

REPORT INFORMATION
  Report Type: Spontaneous
  Country: US (occurrence: US)
  Receive Date: 20140421
  Receipt Date: 20140421
  Transmission Date: 20141212
  Serious: Yes (Other)
  Sender: FDA-Public Use
  Company Number: US-GILEAD-2012-0063702

PATIENT
  Sex: Female

DRUGS (3)
  1. LETAIRIS [Suspect]
     Indication: COR PULMONALE CHRONIC
     Dosage: 5 MG, QD
     Route: 048
     Dates: start: 20120924
  2. TRACLEER                           /01587701/ [Concomitant]
  3. REVATIO [Concomitant]

REACTIONS (3)
  - No therapeutic response [Unknown]
  - Feeling abnormal [Unknown]
  - Dyspnoea [Unknown]
